FAERS Safety Report 4597641-8 (Version None)
Quarter: 2005Q1

REPORT INFORMATION
  Report Type: 
  Country: None (occurrence: None)
  Receive Date: 20050303
  Receipt Date: 20050302
  Transmission Date: 20050727
  Serious: Yes (Other)
  Sender: FDA-Public Use
  Company Number: US-GLAXOSMITHKLINE-A0547964A

PATIENT
  Sex: Female

DRUGS (2)
  1. DYAZIDE [Suspect]
     Indication: HYPERTENSION
     Route: 048
  2. ATENOLOL [Suspect]

REACTIONS (7)
  - BLOOD GLUCOSE INCREASED [None]
  - BURNING SENSATION [None]
  - CHROMATURIA [None]
  - ERYTHEMA [None]
  - POLLAKIURIA [None]
  - SKIN CANCER [None]
  - SOMNOLENCE [None]
